FAERS Safety Report 19921011 (Version 1)
Quarter: 2021Q4

REPORT INFORMATION
  Report Type: Spontaneous
  Country: US (occurrence: US)
  Receive Date: 20211005
  Receipt Date: 20211005
  Transmission Date: 20220303
  Serious: No
  Sender: FDA-Public Use
  Company Number: US-ADAMAS PHARMA, LLC-2021ADA01524

PATIENT
  Age: 86 Year
  Sex: Male
  Weight: 120.18 kg

DRUGS (32)
  1. GOCOVRI [Suspect]
     Active Substance: AMANTADINE
     Indication: Dyskinesia
     Dosage: 137 MG, 1X/DAY, AT BEDTIME
     Route: 048
     Dates: start: 20210618, end: 20210619
  2. CARBIDOPA\LEVODOPA [Concomitant]
     Active Substance: CARBIDOPA\LEVODOPA
     Dosage: 1 TABLETS, 2X/DAY
     Route: 048
  3. BREO ELLIPTA [Concomitant]
     Active Substance: FLUTICASONE FUROATE\VILANTEROL TRIFENATATE
     Dosage: 1 INHALATION, 1X/DAY
  4. LORAZEPAM [Concomitant]
     Active Substance: LORAZEPAM
     Dosage: 0.5 MG, 2X/DAY
     Route: 048
  5. CLONAZEPAM [Concomitant]
     Active Substance: CLONAZEPAM
     Dosage: 0.5-1 MG, 1X/DAY AT BEDTIME
     Route: 048
  6. VENTOLIN HFA [Concomitant]
     Active Substance: ALBUTEROL SULFATE
     Dosage: 180 ?G, UP TO 4X/DAY (EVERY 6 HOURS AS NEEDED)
  7. ACETAMINOPHEN\HYDROCODONE [Concomitant]
     Active Substance: ACETAMINOPHEN\HYDROCODONE
     Dosage: 1 TABLETS, 1X/DAY, AT BEDTIME
     Route: 048
  8. VALERIAN [Concomitant]
     Active Substance: VALERIAN
     Dosage: 45 MG, 1X/DAY
     Route: 048
  9. DIETARY SUPPLEMENT [Concomitant]
     Active Substance: DIETARY SUPPLEMENT
     Dosage: 150 MG, 1X/DAY
  10. FAMOTIDINE [Concomitant]
     Active Substance: FAMOTIDINE
     Dosage: 40 MG, 1X/DAY, IN THE PM
     Route: 048
  11. PRAMIPEXOLE [Concomitant]
     Active Substance: PRAMIPEXOLE
     Dosage: 0.75 MG, 1X/DAY, AT BEDTIME
     Route: 048
  12. BUMETANIDE [Concomitant]
     Active Substance: BUMETANIDE
     Dosage: 1 MG, 2X/DAY
     Route: 048
  13. DICLOFENAC [Concomitant]
     Active Substance: DICLOFENAC
     Dosage: APPLY TO AFFECTED AREA, UP TO 3X/DAY AS NEEDED
     Route: 061
  14. FLONASE ALLERGY RELIEF [Concomitant]
     Active Substance: FLUTICASONE PROPIONATE
     Dosage: 100 ?G IN EACH NOSTRIL, 2X/DAY
     Route: 045
  15. MONTELUKAST [Concomitant]
     Active Substance: MONTELUKAST SODIUM
     Dosage: 10 MG, 1X/DAY
     Route: 048
  16. TRAZODONE [Concomitant]
     Active Substance: TRAZODONE HYDROCHLORIDE
     Dosage: 50 MG, 1X/DAY, AT BEDTIME
     Route: 048
  17. LEVEMIR [Concomitant]
     Active Substance: INSULIN DETEMIR
     Dosage: 47 UNITS IN AM, 45 UNITS IN PM
     Route: 058
  18. MIRALAX [Concomitant]
     Active Substance: POLYETHYLENE GLYCOL 3350
     Dosage: 17 G RECONSTITUTED IN AT LEAST 4 OZ OF FLUID, 1X/DAY
     Route: 048
  19. ALBUTEROL [Concomitant]
     Active Substance: ALBUTEROL
     Dosage: 2.5 MG (3 ML VIA NEBULIZER), UP TO 3X/DAY (EVERY 8 HOURS PRN)
  20. INCRUSE ELLIPTA [Concomitant]
     Active Substance: UMECLIDINIUM BROMIDE
     Dosage: 62.5 ?G, 1X/DAY
  21. DONEPEZIL [Concomitant]
     Active Substance: DONEPEZIL
     Dosage: 20 MG, 1X/DAY, EVERY MORNING
     Route: 048
  22. MEMANTINE [Concomitant]
     Active Substance: MEMANTINE
     Dosage: 10 MG, 2X/DAY
     Route: 048
  23. VITAMIN D3 [Concomitant]
     Active Substance: CHOLECALCIFEROL
     Dosage: 1250 ?G, 1X/WEEK
     Route: 048
  24. METANX [Concomitant]
     Active Substance: LEVOMEFOLATE CALCIUM\METHYLCOBALAMIN\PYRIDOXAL PHOSPHATE ANHYDROUS
     Dosage: 1 CAPSULES, 2X/DAY
     Route: 048
  25. ENTRESTO [Concomitant]
     Active Substance: SACUBITRIL\VALSARTAN
     Dosage: 1 TABLETS, 2X/DAY
     Route: 048
  26. OMEPRAZOLE [Concomitant]
     Active Substance: OMEPRAZOLE
     Dosage: 20 MG, 1X/DAY, IN THE MORNING
     Route: 048
  27. HUMALOG KWIKPEN [Concomitant]
     Active Substance: INSULIN LISPRO
     Dosage: 40, 36, 32 UNITS PER SLIDIING SCALE, 1X/DAY
     Route: 058
  28. SPIRONOLACTONE [Concomitant]
     Active Substance: SPIRONOLACTONE
     Dosage: 25 MG, 2X/DAY
     Route: 048
  29. FLUOXETINE [Concomitant]
     Active Substance: FLUOXETINE HYDROCHLORIDE
     Dosage: 20 MG, 1X/DAY, IN THE AM
  30. LATANOPROST [Concomitant]
     Active Substance: LATANOPROST
     Dosage: 1 GTT, EACH EYE, 1X/DAY AT BEDTIME
     Route: 047
  31. CLOMIPRAMINE [Concomitant]
     Active Substance: CLOMIPRAMINE
     Dosage: 100 MG, EVERY MORNING
     Route: 048
  32. CLOMIPRAMINE [Concomitant]
     Active Substance: CLOMIPRAMINE
     Dosage: 50 MG, EVERY EVENING
     Route: 048

REACTIONS (5)
  - Chronic kidney disease [Not Recovered/Not Resolved]
  - Abnormal behaviour [Recovering/Resolving]
  - Sleep talking [Recovering/Resolving]
  - Staring [Recovering/Resolving]
  - Hallucination, visual [Recovering/Resolving]

NARRATIVE: CASE EVENT DATE: 20210618
